FAERS Safety Report 7421180-X (Version None)
Quarter: 2011Q2

REPORT INFORMATION
  Report Type: 
  Country: None (occurrence: None)
  Receive Date: 20110418
  Receipt Date: 20110412
  Transmission Date: 20111010
  Serious: Yes (Hospitalization)
  Sender: FDA-Public Use
  Company Number: US-B.I. PHARMACEUTICALS,INC./RIDGEFIELD-2011-BP-10634BP

PATIENT
  Age: 59 Year
  Sex: Male

DRUGS (8)
  1. SOMA [Concomitant]
     Route: 048
  2. CYMBALTA [Concomitant]
     Route: 048
  3. AMBIEN [Concomitant]
     Indication: SLEEP DISORDER
     Route: 048
     Dates: start: 20060101
  4. LORTAB [Concomitant]
     Indication: PAIN
     Route: 048
  5. ATENOLOL [Concomitant]
     Route: 048
  6. PRADAXA [Suspect]
     Indication: ATRIAL FIBRILLATION
     Dosage: 150 MG
     Route: 048
     Dates: start: 20110301
  7. OXYCONTIN [Concomitant]
     Indication: PAIN
     Route: 048
  8. PERCOCET [Concomitant]
     Indication: PAIN
     Route: 048

REACTIONS (4)
  - TREMOR [None]
  - ASTHENIA [None]
  - PULMONARY EMBOLISM [None]
  - PNEUMONIA [None]
